FAERS Safety Report 20887465 (Version 2)
Quarter: 2022Q2

REPORT INFORMATION
  Report Type: Spontaneous
  Country: RO (occurrence: RO)
  Receive Date: 20220528
  Receipt Date: 20220613
  Transmission Date: 20220720
  Serious: Yes (Hospitalization)
  Sender: FDA-Public Use
  Company Number: RO-NOVARTISPH-NVSC2022RO121099

PATIENT
  Age: 65 Year
  Sex: Female

DRUGS (6)
  1. GLYCOPYRROLATE\INDACATEROL\MOMETASONE FUROATE [Suspect]
     Active Substance: GLYCOPYRROLATE\INDACATEROL\MOMETASONE FUROATE
     Indication: Asthma
     Dosage: 1 UNK, QD
     Route: 065
     Dates: start: 202203, end: 202204
  2. GLYCOPYRROLATE\INDACATEROL\MOMETASONE FUROATE [Suspect]
     Active Substance: GLYCOPYRROLATE\INDACATEROL\MOMETASONE FUROATE
     Dosage: 1 UNK, QD
     Route: 065
     Dates: start: 202205
  3. EBASTINE [Concomitant]
     Active Substance: EBASTINE
     Indication: Asthma
     Dosage: UNK
     Route: 065
     Dates: start: 202203
  4. SINGULAIR [Concomitant]
     Active Substance: MONTELUKAST SODIUM
     Indication: Asthma
     Dosage: UNK
     Route: 065
     Dates: start: 202203
  5. METFORMIN HYDROCHLORIDE [Concomitant]
     Active Substance: METFORMIN HYDROCHLORIDE
     Indication: Diabetes mellitus
     Dosage: UNK (1 X 2 TB PER DAY)
     Route: 065
  6. TRULICITY [Concomitant]
     Active Substance: DULAGLUTIDE
     Indication: Diabetes mellitus
     Dosage: UNK, QW
     Route: 065

REACTIONS (1)
  - Lung disorder [Recovering/Resolving]

NARRATIVE: CASE EVENT DATE: 20220401
